FAERS Safety Report 9095487 (Version 2)
Quarter: 2013Q2

REPORT INFORMATION
  Report Type: Spontaneous
  Country: US (occurrence: US)
  Receive Date: 20130220
  Receipt Date: 20130412
  Transmission Date: 20140414
  Serious: No
  Sender: FDA-Public Use
  Company Number: US-009507513-1302USA008778

PATIENT
  Sex: Male

DRUGS (10)
  1. VICTRELIS [Suspect]
     Indication: HEPATITIS C
     Dosage: 4 OF VICTRELIS CAPSULES TID
     Route: 048
     Dates: start: 201209
  2. RIBAVIRIN [Suspect]
     Indication: HEPATITIS C
  3. PEGASYS [Suspect]
     Indication: HEPATITIS C
     Dosage: PEGASYS SHOT ONCE A WEEK
  4. OMEPRAZOLE [Concomitant]
  5. INDAPAMIDE [Concomitant]
  6. DOXAZOSIN MESYLATE [Concomitant]
  7. FINASTERIDE [Concomitant]
  8. POTASSIUM CHLORIDE [Concomitant]
  9. ASPIRIN [Concomitant]
     Dosage: BAYER LOW DOSE
  10. TYLENOL [Concomitant]
     Dosage: UNK, PRN

REACTIONS (1)
  - Dysgeusia [Not Recovered/Not Resolved]
